FAERS Safety Report 12147708 (Version 3)
Quarter: 2016Q2

REPORT INFORMATION
  Report Type: Report from Study
  Country: CH (occurrence: CH)
  Receive Date: 20160304
  Receipt Date: 20160406
  Transmission Date: 20160815
  Serious: Yes (Hospitalization)
  Sender: FDA-Public Use
  Company Number: CH-VERTEX PHARMACEUTICALS-2016-001269

PATIENT
  Age: 16 Year
  Sex: Female
  Weight: 53 kg

DRUGS (11)
  1. MUCOCLEAR [Concomitant]
     Indication: CYSTIC FIBROSIS LUNG
     Dosage: UNK, BID
     Route: 055
     Dates: start: 20110311
  2. VX-770/VX-661 [Suspect]
     Active Substance: INVESTIGATIONAL PRODUCT
     Indication: CYSTIC FIBROSIS
     Dosage: 150 MG, BID
     Route: 048
     Dates: start: 20151202, end: 20160225
  3. CO-AMOXICLAV [Concomitant]
     Active Substance: AMOXICILLIN\CLAVULANIC ACID
     Dosage: 1 G, TID
     Route: 048
     Dates: start: 20160228, end: 20160310
  4. CREON [Concomitant]
     Active Substance: PANCRELIPASE AMYLASE\PANCRELIPASE LIPASE\PANCRELIPASE PROTEASE
     Indication: PANCREATIC INSUFFICIENCY
     Dosage: 25000 IU, 23-24 TIMES A DAY
     Dates: start: 20120113
  5. CO-AMOXICLAV [Concomitant]
     Active Substance: AMOXICILLIN\CLAVULANIC ACID
     Indication: INFECTIVE PULMONARY EXACERBATION OF CYSTIC FIBROSIS
     Dosage: 1 G, TID
     Route: 048
     Dates: start: 20160225, end: 20160225
  6. PERENTEROL [Concomitant]
     Active Substance: SACCHAROMYCES CEREVISIAE
     Indication: PROPHYLAXIS AGAINST DIARRHOEA
     Dosage: 250 MG, BID
     Route: 048
     Dates: start: 20160225, end: 20160225
  7. SYMBICORT [Concomitant]
     Active Substance: BUDESONIDE\FORMOTEROL FUMARATE DIHYDRATE
     Indication: CYSTIC FIBROSIS LUNG
     Dosage: 100/6, BID
     Route: 055
     Dates: start: 20121207
  8. RINGER ACETATE [Concomitant]
     Indication: FLUID REPLACEMENT
     Dosage: 1 L/1 H
     Route: 042
     Dates: start: 20160225, end: 20160225
  9. VX-661/VX-770 [Suspect]
     Active Substance: INVESTIGATIONAL PRODUCT
     Indication: CYSTIC FIBROSIS
     Dosage: 100 MG, QD
     Route: 048
     Dates: start: 20151202, end: 20160225
  10. CO-AMOXICLAV [Concomitant]
     Active Substance: AMOXICILLIN\CLAVULANIC ACID
     Dosage: 1 G, UNK
     Route: 042
     Dates: start: 20160225, end: 20160228
  11. BRICANYL [Concomitant]
     Active Substance: TERBUTALINE SULFATE
     Indication: CYSTIC FIBROSIS LUNG
     Dosage: 1 DF, BID
     Route: 055
     Dates: start: 20160227

REACTIONS (1)
  - Seizure [Recovered/Resolved]

NARRATIVE: CASE EVENT DATE: 20160225
